FAERS Safety Report 7562299-2 (Version None)
Quarter: 2011Q2

REPORT INFORMATION
  Report Type: 
  Country: None (occurrence: None)
  Receive Date: 20110622
  Receipt Date: 20110610
  Transmission Date: 20111010
  Serious: Yes (Hospitalization)
  Sender: FDA-Public Use
  Company Number: CA-ELI_LILLY_AND_COMPANY-CA201106003362

PATIENT
  Age: 72 Year
  Sex: Female

DRUGS (16)
  1. FORTEO [Suspect]
     Indication: OSTEOPOROSIS
     Dosage: 20 UG, QD
     Route: 058
     Dates: start: 20110209, end: 20110606
  2. COLACE [Concomitant]
  3. LYRICA [Concomitant]
  4. INSULIN NOVORAPID [Concomitant]
  5. TYLENOL                                 /SCH/ [Concomitant]
  6. CALCIUM CARBONATE [Concomitant]
  7. NORVASC [Concomitant]
  8. TRAZODONE HCL [Concomitant]
  9. ATACAND [Concomitant]
  10. PANTOLOC                           /01263202/ [Concomitant]
  11. DILAUDID                                /CAN/ [Concomitant]
  12. CRESTOR [Concomitant]
  13. IRON SULFATETHIAMIN COMPOUND TAB [Concomitant]
  14. VITAMIN D [Concomitant]
  15. SENOKOT [Concomitant]
  16. SYNTHROID [Concomitant]

REACTIONS (2)
  - BACK PAIN [None]
  - DRUG INEFFECTIVE [None]
